FAERS Safety Report 6764385-3 (Version None)
Quarter: 2010Q2

REPORT INFORMATION
  Report Type: 
  Country: None (occurrence: None)
  Receive Date: 20100609
  Receipt Date: 20100502
  Transmission Date: 20101027
  Serious: No
  Sender: FDA-Public Use
  Company Number: 2010007691

PATIENT
  Age: 5 Year
  Sex: Female
  Weight: 19.9583 kg

DRUGS (3)
  1. CHILDREN'S ZYRTEC ALLERGY [Suspect]
     Indication: HYPERSENSITIVITY
     Dosage: ONE TEASPOON ON A NIGHTLY BASIS,ORAL
     Route: 048
  2. CHILDREN'S ZYRTEC ALLERGY [Suspect]
  3. MOMETASONE FUROATE [Concomitant]

REACTIONS (8)
  - COUGH [None]
  - CRYING [None]
  - LACK OF SPONTANEOUS SPEECH [None]
  - MEMORY IMPAIRMENT [None]
  - PRODUCT QUALITY ISSUE [None]
  - SLEEP TERROR [None]
  - SOMNAMBULISM [None]
  - SOMNOLENCE [None]
